FAERS Safety Report 8091017-7 (Version None)
Quarter: 2012Q1

REPORT INFORMATION
  Report Type: 
  Country: None (occurrence: None)
  Receive Date: 20120128
  Receipt Date: 20110731
  Transmission Date: 20120608
  Serious: No
  Sender: FDA-Public Use
  Company Number: US-ABBOTT-11P-163-0843019-00

PATIENT
  Age: 64 Year
  Sex: Male

DRUGS (6)
  1. FLOMAX [Concomitant]
     Indication: URINE ABNORMALITY
     Dosage: AT BEDTIME
  2. ROBINUL [Concomitant]
     Indication: DIARRHOEA
  3. HUMIRA [Suspect]
     Indication: CROHN'S DISEASE
     Dates: start: 20110604
  4. PENTASA [Concomitant]
     Indication: CROHN'S DISEASE
  5. MULTI-VITAMINS [Concomitant]
     Indication: SUPPLEMENTATION THERAPY
     Dosage: DAILY
  6. LYRICA [Concomitant]
     Indication: ARTHRITIS
     Dosage: TWICE DAILY

REACTIONS (1)
  - INJECTION SITE HAEMATOMA [None]
